FAERS Safety Report 17052468 (Version 1)
Quarter: 2019Q4

REPORT INFORMATION
  Report Type: Spontaneous
  Country: US (occurrence: US)
  Receive Date: 20191120
  Receipt Date: 20191120
  Transmission Date: 20200122
  Serious: Yes (Other)
  Sender: FDA-Public Use
  Company Number: US-PFIZER INC-2019493767

PATIENT
  Age: 59 Year
  Sex: Female
  Weight: 81.65 kg

DRUGS (4)
  1. ADVIL COLD AND SINUS [Suspect]
     Active Substance: IBUPROFEN\PSEUDOEPHEDRINE HYDROCHLORIDE
     Indication: ABDOMINAL PAIN UPPER
     Dosage: 2 DF, UNK
  2. ADVIL COLD AND SINUS [Suspect]
     Active Substance: IBUPROFEN\PSEUDOEPHEDRINE HYDROCHLORIDE
     Indication: PAIN
     Dosage: 1 DF, UNK (SWALLOWED 1-2 EVERY 6 HOURS BUT ONE USUALLY WORKS)
     Route: 048
  3. ADVIL COLD AND SINUS [Suspect]
     Active Substance: IBUPROFEN\PSEUDOEPHEDRINE HYDROCHLORIDE
     Indication: HEADACHE
  4. ADVIL COLD AND SINUS [Suspect]
     Active Substance: IBUPROFEN\PSEUDOEPHEDRINE HYDROCHLORIDE
     Indication: PYREXIA

REACTIONS (4)
  - Hallucination [Not Recovered/Not Resolved]
  - Hypertension [Unknown]
  - Emotional disorder [Not Recovered/Not Resolved]
  - Initial insomnia [Not Recovered/Not Resolved]

NARRATIVE: CASE EVENT DATE: 2019
